FAERS Safety Report 10613054 (Version 1)
Quarter: 2014Q4

REPORT INFORMATION
  Report Type: Spontaneous
  Country: US (occurrence: US)
  Receive Date: 20141127
  Receipt Date: 20141127
  Transmission Date: 20150529
  Serious: Yes (Other)
  Sender: FDA-Public Use
  Company Number: US-JNJFOC-20141113654

PATIENT
  Age: 50 Year
  Sex: Male

DRUGS (4)
  1. DIPHENHYDRAMINE HYDROCHLORIDE. [Suspect]
     Active Substance: DIPHENHYDRAMINE HYDROCHLORIDE
     Indication: PREMEDICATION
     Route: 048
  2. PREDNISONE. [Suspect]
     Active Substance: PREDNISONE
     Indication: PREMEDICATION
     Dosage: (13, 7, AND 1 HR PRE- PROCEDURE).
     Route: 048
  3. METHYLPREDNISOLONE. [Suspect]
     Active Substance: METHYLPREDNISOLONE
     Indication: PREMEDICATION
     Dosage: 1 HOUR PRE PROCEDURE.
     Route: 065
  4. IOHEXOL [Suspect]
     Active Substance: IOHEXOL
     Indication: PRODUCT USED FOR UNKNOWN INDICATION
     Dosage: (640 MOSM/KG).
     Route: 065

REACTIONS (6)
  - Angioedema [Unknown]
  - Wheezing [Unknown]
  - Product use issue [Unknown]
  - Urticaria [Unknown]
  - Nasal congestion [Unknown]
  - Drug ineffective for unapproved indication [Unknown]
